FAERS Safety Report 8238564-2 (Version None)
Quarter: 2012Q1

REPORT INFORMATION
  Report Type: 
  Country: None (occurrence: None)
  Receive Date: 20120327
  Receipt Date: 20120319
  Transmission Date: 20120608
  Serious: Yes (Hospitalization, Other)
  Sender: FDA-Public Use
  Company Number: US-ABBOTT-12P-163-0917011-00

PATIENT
  Sex: Female
  Weight: 79.45 kg

DRUGS (3)
  1. LUPRON DEPOT [Suspect]
     Dates: start: 20110601, end: 20111101
  2. LUPRON DEPOT [Suspect]
     Indication: ENDOMETRIOSIS
     Dates: start: 20070101
  3. LUPRON DEPOT [Suspect]
     Dates: start: 20111201

REACTIONS (5)
  - DEHYDRATION [None]
  - NAUSEA [None]
  - VOMITING [None]
  - ENDOMETRIOSIS [None]
  - DRUG EFFECT DECREASED [None]
